FAERS Safety Report 15703466 (Version 1)
Quarter: 2018Q4

REPORT INFORMATION
  Report Type: Spontaneous
  Country: US (occurrence: US)
  Receive Date: 20181210
  Receipt Date: 20181210
  Transmission Date: 20190205
  Serious: No
  Sender: FDA-Public Use
  Company Number: US-PFIZER INC-2018021180

PATIENT
  Age: 40 Year
  Sex: Male

DRUGS (2)
  1. GENOTROPIN [Suspect]
     Active Substance: SOMATROPIN
     Dosage: 0.4 MG, DAILY
  2. GENOTROPIN [Suspect]
     Active Substance: SOMATROPIN
     Dosage: 0.3 MG, DAILY

REACTIONS (9)
  - Anxiety [Unknown]
  - Visual impairment [Unknown]
  - Ocular hyperaemia [Unknown]
  - Red cell distribution width increased [Unknown]
  - Blood thyroid stimulating hormone decreased [Unknown]
  - Skin disorder [Unknown]
  - Snoring [Unknown]
  - Pollakiuria [Unknown]
  - Product prescribing error [Unknown]

NARRATIVE: CASE EVENT DATE: 20180612
